FAERS Safety Report 23833575 (Version 1)
Quarter: 2024Q2

REPORT INFORMATION
  Report Type: Spontaneous
  Country: US (occurrence: US)
  Receive Date: 20240508
  Receipt Date: 20240508
  Transmission Date: 20240716
  Serious: No
  Sender: FDA-Public Use
  Company Number: US-JNJFOC-20240518276

PATIENT
  Sex: Female

DRUGS (1)
  1. TALQUETAMAB [Suspect]
     Active Substance: TALQUETAMAB
     Indication: Product used for unknown indication
     Route: 065

REACTIONS (18)
  - Nail injury [Recovering/Resolving]
  - Nail injury [Recovering/Resolving]
  - Skin atrophy [Not Recovered/Not Resolved]
  - Alopecia [Recovering/Resolving]
  - Panic attack [Not Recovered/Not Resolved]
  - Sensitive skin [Not Recovered/Not Resolved]
  - Fear [Not Recovered/Not Resolved]
  - Onychoclasis [Recovering/Resolving]
  - Weight decreased [Recovering/Resolving]
  - Fatigue [Not Recovered/Not Resolved]
  - Pain [Not Recovered/Not Resolved]
  - Taste disorder [Recovering/Resolving]
  - Dry mouth [Recovering/Resolving]
  - Skin exfoliation [Recovering/Resolving]
  - Pain [Not Recovered/Not Resolved]
  - Skin exfoliation [Recovered/Resolved]
  - Dysphagia [Recovering/Resolving]
  - Nail discolouration [Recovering/Resolving]
